FAERS Safety Report 15644290 (Version 1)
Quarter: 2018Q4

REPORT INFORMATION
  Report Type: Spontaneous
  Country: US (occurrence: US)
  Receive Date: 20181115
  Receipt Date: 20181115
  Transmission Date: 20190205
  Serious: Yes (Death, Disabling)
  Sender: FDA-Public Use
  Company Number: None

PATIENT
  Age: 71 Month
  Sex: Male
  Weight: 91.8 kg

DRUGS (6)
  1. XARELTO [Concomitant]
     Active Substance: RIVAROXABAN
  2. GLEEVEC [Concomitant]
     Active Substance: IMATINIB MESYLATE
  3. IMATINIB. [Suspect]
     Active Substance: IMATINIB MESYLATE
     Indication: CHRONIC MYELOID LEUKAEMIA
     Route: 048
     Dates: start: 20180913
  4. BISOPROLOL [Concomitant]
     Active Substance: BISOPROLOL
  5. LOSARTAN. [Concomitant]
     Active Substance: LOSARTAN
  6. ALLOPURINOL. [Concomitant]
     Active Substance: ALLOPURINOL

REACTIONS (1)
  - Disease progression [None]
